FAERS Safety Report 25784862 (Version 2)
Quarter: 2025Q4

REPORT INFORMATION
  Report Type: Spontaneous
  Country: US (occurrence: US)
  Receive Date: 20250910
  Receipt Date: 20251009
  Transmission Date: 20260117
  Serious: No
  Sender: INDOCO REMEDIES LIMITED
  Company Number: US-INDOCO-IND-2025-US-SPO-00754

PATIENT
  Age: 59 Year
  Sex: Male

DRUGS (1)
  1. FEBUXOSTAT [Suspect]
     Active Substance: FEBUXOSTAT
     Indication: Blood uric acid increased
     Dosage: 40 MG SINGLE DOSE
     Route: 048
     Dates: start: 20250830, end: 20250830

REACTIONS (3)
  - Penile haemorrhage [Recovered/Resolved]
  - Diarrhoea [Recovered/Resolved]
  - Treatment noncompliance [Unknown]

NARRATIVE: CASE EVENT DATE: 20250830
